FAERS Safety Report 6905144-8 (Version None)
Quarter: 2010Q3

REPORT INFORMATION
  Report Type: 
  Country: None (occurrence: None)
  Receive Date: 20100804
  Receipt Date: 20091013
  Transmission Date: 20110219
  Serious: Yes (Other)
  Sender: FDA-Public Use
  Company Number: US-PFIZER INC-2009244036

PATIENT
  Sex: Male
  Weight: 77.098 kg

DRUGS (8)
  1. LYRICA [Suspect]
     Indication: PAIN IN EXTREMITY
     Dosage: 75 MG, 4X/DAY
     Dates: start: 20080101
  2. LYRICA [Suspect]
  3. SYNTHROID [Concomitant]
     Dosage: UNK
  4. TAMSULOSIN HYDROCHLORIDE [Concomitant]
     Dosage: UNK
  5. VALSARTAN [Concomitant]
     Indication: HYPERTENSION
     Dosage: UNK
  6. LIPITOR [Concomitant]
     Indication: BLOOD CHOLESTEROL INCREASED
     Dosage: UNK
  7. HYDROCODONE BITARTRATE [Concomitant]
     Dosage: UNK
  8. ADVIL LIQUI-GELS [Concomitant]
     Dosage: UNK

REACTIONS (3)
  - DYSARTHRIA [None]
  - SPEECH DISORDER [None]
  - WEIGHT INCREASED [None]
